FAERS Safety Report 7288900-9 (Version None)
Quarter: 2011Q1

REPORT INFORMATION
  Report Type: 
  Country: None (occurrence: None)
  Receive Date: 20110211
  Receipt Date: 20080722
  Transmission Date: 20110831
  Serious: Yes (Other)
  Sender: FDA-Public Use
  Company Number: PHHY2008CL37346

PATIENT
  Age: 74 Year
  Sex: Female

DRUGS (1)
  1. TAREG [Suspect]

REACTIONS (2)
  - FATIGUE [None]
  - PNEUMONIA [None]
